FAERS Safety Report 18590585 (Version 2)
Quarter: 2020Q4

REPORT INFORMATION
  Report Type: Report from Study
  Country: US (occurrence: US)
  Receive Date: 20201208
  Receipt Date: 20201217
  Transmission Date: 20210114
  Serious: Yes (Life-Threatening, Hospitalization, Other)
  Sender: FDA-Public Use
  Company Number: NVSC2020US231209

PATIENT
  Age: 7 Year
  Sex: Male
  Weight: 27.4 kg

DRUGS (7)
  1. KISQALI [Suspect]
     Active Substance: RIBOCICLIB
     Indication: GLIOMA
     Dosage: 150 MG, QD
     Route: 048
     Dates: start: 20191203, end: 20200814
  2. ZORTRESS [Suspect]
     Active Substance: EVEROLIMUS
     Indication: GLIOMA
     Dosage: 1.4 MG, QD
     Route: 048
     Dates: start: 20191203, end: 20200814
  3. METOPROLOL. [Concomitant]
     Active Substance: METOPROLOL
     Indication: CARDIAC DISORDER
     Dosage: UNK
     Route: 065
     Dates: end: 20200813
  4. POLYETHYLENE GLYCOL [Concomitant]
     Active Substance: POLYETHYLENE GLYCOLS
     Indication: PRODUCT USED FOR UNKNOWN INDICATION
     Dosage: 8.5 G, PRN
     Route: 048
  5. FERROUS SULFATE. [Concomitant]
     Active Substance: FERROUS SULFATE
     Indication: PRODUCT USED FOR UNKNOWN INDICATION
     Dosage: UNK
     Route: 065
  6. PENTAMIDINE [Concomitant]
     Active Substance: PENTAMIDINE
     Indication: PRODUCT USED FOR UNKNOWN INDICATION
     Dosage: 105 MG, MONTHLY
     Route: 042
  7. DEXAMETHASONE. [Concomitant]
     Active Substance: DEXAMETHASONE
     Indication: PRODUCT USED FOR UNKNOWN INDICATION
     Dosage: 5 ML PRN
     Route: 048

REACTIONS (3)
  - Ventricular arrhythmia [Recovered/Resolved]
  - Ventricular tachycardia [Recovered/Resolved]
  - Conduction disorder [Recovering/Resolving]

NARRATIVE: CASE EVENT DATE: 20200807
